FAERS Safety Report 13669306 (Version 3)
Quarter: 2017Q3

REPORT INFORMATION
  Report Type: Spontaneous
  Country: DE (occurrence: DE)
  Receive Date: 20170620
  Receipt Date: 20170801
  Transmission Date: 20171127
  Serious: Yes (Hospitalization, Other)
  Sender: FDA-Public Use
  Company Number: PHHY2017DE090241

PATIENT
  Age: 73 Year
  Sex: Male
  Weight: 114 kg

DRUGS (5)
  1. SIMVASTATIN. [Concomitant]
     Active Substance: SIMVASTATIN
     Indication: PRODUCT USED FOR UNKNOWN INDICATION
     Route: 065
  2. ENTRESTO [Suspect]
     Active Substance: SACUBITRIL\VALSARTAN
     Dosage: 100 (48/52) MG, BID
     Route: 048
     Dates: start: 201704, end: 20170615
  3. ENTRESTO [Suspect]
     Active Substance: SACUBITRIL\VALSARTAN
     Indication: CARDIAC FAILURE
     Dosage: 50 (24/26) MG, BID
     Route: 048
     Dates: start: 20170129, end: 201704
  4. GENTAMICIN. [Suspect]
     Active Substance: GENTAMICIN
     Indication: UROSEPSIS
     Route: 042
  5. XARELTO [Concomitant]
     Active Substance: RIVAROXABAN
     Indication: PRODUCT USED FOR UNKNOWN INDICATION
     Route: 065

REACTIONS (6)
  - Dizziness postural [Not Recovered/Not Resolved]
  - Hypotension [Not Recovered/Not Resolved]
  - Urosepsis [Recovered/Resolved]
  - Hypokalaemia [Recovered/Resolved]
  - Gait disturbance [Not Recovered/Not Resolved]
  - Weight decreased [Unknown]

NARRATIVE: CASE EVENT DATE: 201704
